FAERS Safety Report 23931935 (Version 1)
Quarter: 2024Q2

REPORT INFORMATION
  Report Type: Report from Study
  Country: US (occurrence: US)
  Receive Date: 20240603
  Receipt Date: 20240603
  Transmission Date: 20240716
  Serious: Yes (Other)
  Sender: FDA-Public Use
  Company Number: US-AMGEN-HZN-2023-007084

PATIENT
  Age: 72 Year
  Sex: Female

DRUGS (6)
  1. KRYSTEXXA [Suspect]
     Active Substance: PEGLOTICASE
     Indication: Product used for unknown indication
     Dosage: FIRST INFUSION
     Route: 042
     Dates: start: 20230804
  2. KRYSTEXXA [Suspect]
     Active Substance: PEGLOTICASE
     Dosage: FOURTH INFUSION
     Route: 042
     Dates: start: 20230915
  3. KRYSTEXXA [Suspect]
     Active Substance: PEGLOTICASE
     Dosage: FOURTEENTH  INFUSION
     Route: 042
     Dates: start: 20240209
  4. KRYSTEXXA [Suspect]
     Active Substance: PEGLOTICASE
     Dosage: FIFTEENTH INFUSION
     Route: 042
     Dates: start: 20240223
  5. KRYSTEXXA [Suspect]
     Active Substance: PEGLOTICASE
     Dosage: UNK
     Route: 042
     Dates: start: 20240503
  6. KRYSTEXXA [Suspect]
     Active Substance: PEGLOTICASE
     Dosage: UNK
     Route: 042
     Dates: start: 20240517

REACTIONS (2)
  - Chronic kidney disease [Not Recovered/Not Resolved]
  - Gout [Recovered/Resolved]

NARRATIVE: CASE EVENT DATE: 20230101
